FAERS Safety Report 6723171-0 (Version None)
Quarter: 2010Q2

REPORT INFORMATION
  Report Type: 
  Country: None (occurrence: None)
  Receive Date: 20100513
  Receipt Date: 20100505
  Transmission Date: 20101027
  Serious: Yes (Hospitalization, Other)
  Sender: FDA-Public Use
  Company Number: US-JNJFOC-20100501847

PATIENT
  Sex: Male
  Weight: 65.77 kg

DRUGS (6)
  1. FENTANYL CITRATE [Suspect]
     Indication: NECK PAIN
     Route: 062
  2. FENTANYL CITRATE [Suspect]
     Route: 062
  3. FENTANYL CITRATE [Suspect]
     Indication: BACK PAIN
     Route: 062
  4. FENTANYL CITRATE [Suspect]
     Route: 062
  5. ULTRAM [Concomitant]
     Indication: PAIN
     Route: 048
  6. FIORINAL NOS [Concomitant]
     Indication: PAIN
     Route: 048

REACTIONS (9)
  - ABDOMINAL PAIN UPPER [None]
  - ADVERSE EVENT [None]
  - BACK PAIN [None]
  - DYSSTASIA [None]
  - GASTROINTESTINAL DISORDER [None]
  - NECK PAIN [None]
  - PYREXIA [None]
  - THERAPEUTIC RESPONSE DECREASED [None]
  - WITHDRAWAL SYNDROME [None]
